FAERS Safety Report 10812586 (Version 2)
Quarter: 2015Q2

REPORT INFORMATION
  Report Type: Spontaneous
  Country: GB (occurrence: GB)
  Receive Date: 20150218
  Receipt Date: 20150514
  Transmission Date: 20150821
  Serious: Yes (Other)
  Sender: FDA-Public Use
  Company Number: GB-RANBAXY-2015RR-93097

PATIENT

DRUGS (2)
  1. PARACETAMOL [Concomitant]
     Active Substance: ACETAMINOPHEN
     Indication: PRODUCT USED FOR UNKNOWN INDICATION
     Route: 065
  2. CODEINE TABLETS [Suspect]
     Active Substance: CODEINE
     Indication: KNEE ARTHROPLASTY
     Dosage: UP TO 240MG A DAY
     Route: 048
     Dates: start: 20141220

REACTIONS (7)
  - Dry mouth [Recovering/Resolving]
  - Constipation [Recovering/Resolving]
  - Hallucination [Recovering/Resolving]
  - Dizziness [Recovering/Resolving]
  - Nightmare [Recovering/Resolving]
  - Fatigue [Recovering/Resolving]
  - Nausea [Recovering/Resolving]

NARRATIVE: CASE EVENT DATE: 20141221
